FAERS Safety Report 6902180-2 (Version None)
Quarter: 2010Q3

REPORT INFORMATION
  Report Type: 
  Country: None (occurrence: None)
  Receive Date: 20100803
  Receipt Date: 20080502
  Transmission Date: 20110219
  Serious: Yes (Other)
  Sender: FDA-Public Use
  Company Number: US-PFIZER INC-2008038327

PATIENT
  Sex: Female

DRUGS (3)
  1. LYRICA [Suspect]
     Indication: FIBROMYALGIA
     Route: 048
     Dates: start: 20080416
  2. ELAVIL [Concomitant]
  3. LORTAB [Concomitant]

REACTIONS (2)
  - DYSPHAGIA [None]
  - PHARYNGEAL OEDEMA [None]
